FAERS Safety Report 8569186-1 (Version None)
Quarter: 2012Q3

REPORT INFORMATION
  Report Type: 
  Country: None (occurrence: None)
  Receive Date: 20120803
  Receipt Date: 20120615
  Transmission Date: 20120928
  Serious: No
  Sender: FDA-Public Use
  Company Number: US-ABBOTT-12P-163-0946755-00

PATIENT
  Sex: Female
  Weight: 62.198 kg

DRUGS (7)
  1. LEVOTHYROXINE SODIUM [Concomitant]
     Indication: PRODUCT USED FOR UNKNOWN INDICATION
  2. PLAVIX [Concomitant]
     Indication: POSTOPERATIVE CARE
  3. NIASPAN [Suspect]
     Indication: BLOOD TRIGLYCERIDES INCREASED
  4. HYDROCHLOROTHIAZIDE [Concomitant]
     Indication: HYPERTENSION
  5. NIASPAN [Suspect]
     Indication: BLOOD CHOLESTEROL INCREASED
  6. PREMPRO [Concomitant]
     Indication: MENOPAUSAL SYMPTOMS
     Dosage: 1/2 TABLET A DAY
  7. METFORMIN HYDROCHLORIDE [Concomitant]
     Indication: DIABETES MELLITUS

REACTIONS (3)
  - RASH [None]
  - PRURITUS [None]
  - BLOOD GLUCOSE INCREASED [None]
